FAERS Safety Report 8050861-2 (Version None)
Quarter: 2012Q1

REPORT INFORMATION
  Report Type: 
  Country: None (occurrence: None)
  Receive Date: 20120117
  Receipt Date: 20120106
  Transmission Date: 20120608
  Serious: Yes (Other)
  Sender: FDA-Public Use
  Company Number: PHHY2010CA73140

PATIENT
  Sex: Male

DRUGS (3)
  1. EXJADE [Suspect]
     Indication: MYELODYSPLASTIC SYNDROME
     Dosage: 1500 MG, QD
     Route: 048
     Dates: start: 20101023
  2. EXJADE [Suspect]
     Dosage: 1375 MG, UNK
  3. ZANTAC [Concomitant]

REACTIONS (8)
  - DIARRHOEA [None]
  - GENERAL PHYSICAL HEALTH DETERIORATION [None]
  - BLOOD IRON ABNORMAL [None]
  - SERUM FERRITIN ABNORMAL [None]
  - DRUG INEFFECTIVE [None]
  - BRONCHITIS [None]
  - BLOOD PRESSURE DECREASED [None]
  - ANGINA PECTORIS [None]
